FAERS Safety Report 9603741 (Version 1)
Quarter: 2013Q4

REPORT INFORMATION
  Report Type: Report from Study
  Country: GB (occurrence: GB)
  Receive Date: 20131007
  Receipt Date: 20131007
  Transmission Date: 20140711
  Serious: Yes (Hospitalization)
  Sender: FDA-Public Use
  Company Number: GB-ROCHE-1283911

PATIENT
  Age: 67 Year
  Sex: Male
  Weight: 85 kg

DRUGS (4)
  1. CAPECITABINE [Suspect]
     Indication: GASTRIC CANCER
     Dosage: MOST RECENT DOSE ON 28/MAR/2013 OF 54600 MG
     Route: 048
     Dates: start: 20130125
  2. BEVACIZUMAB [Suspect]
     Indication: GASTRIC CANCER
     Dosage: MOST RECENT DOSE ON 08/MAR/2013 OF 650 MG
     Route: 042
     Dates: start: 20130125
  3. EPIRUBICIN [Suspect]
     Indication: GASTRIC CANCER
     Dosage: MOST RECENT 100 MG GIVEN ON 08/MAR/2013
     Route: 042
     Dates: start: 20130125
  4. CISPLATIN [Suspect]
     Indication: GASTRIC CANCER
     Route: 042
     Dates: start: 20130125, end: 20130308

REACTIONS (1)
  - Atrial fibrillation [Recovered/Resolved]
